FAERS Safety Report 8782894 (Version 5)
Quarter: 2012Q4

REPORT INFORMATION
  Report Type: 
  Country: US (occurrence: US)
  Receive Date: 20120913
  Receipt Date: 20121210
  Transmission Date: 20130627
  Serious: Yes (Hospitalization, Other)
  Sender: FDA-Public Use
  Company Number: US-VERTEX PHARMACEUTICAL INC.-2012-020720

PATIENT
  Age: 64 None
  Sex: Female
  Weight: 56 kg

DRUGS (7)
  1. INCIVEK [Suspect]
     Indication: HEPATITIS C
     Dosage: 750 mg, tid
     Route: 048
     Dates: start: 20120831, end: 20121107
  2. PEGASYS [Suspect]
     Indication: HEPATITIS C
     Dosage: 180 ?g, qw
     Route: 058
     Dates: start: 20120831, end: 20121107
  3. RIBAVIRIN [Suspect]
     Indication: HEPATITIS C
     Dosage: 400 mg, bid
     Route: 048
     Dates: start: 20120831, end: 20120917
  4. RIBAVIRIN [Suspect]
     Dosage: 200 mg, bid
     Route: 048
     Dates: start: 20120917, end: 20120924
  5. RIBAVIRIN [Suspect]
     Dosage: 200 mg, qd
     Route: 048
     Dates: start: 20120924, end: 20121107
  6. FUROSEMIDE [Concomitant]
     Indication: ASCITES
     Dosage: 40 mg, qd
     Route: 048
  7. SPIRONOLACTONE [Concomitant]
     Indication: ASCITES
     Dosage: 50 mg, qd
     Route: 048

REACTIONS (15)
  - Renal failure [Recovered/Resolved]
  - White blood cell count decreased [Unknown]
  - Red blood cell count decreased [Unknown]
  - Platelet count decreased [Unknown]
  - Rash [Recovered/Resolved]
  - Epistaxis [Recovered/Resolved]
  - Dehydration [Recovered/Resolved]
  - Influenza like illness [Recovered/Resolved]
  - Weight increased [Not Recovered/Not Resolved]
  - Joint swelling [Recovered/Resolved]
  - Vulvovaginal mycotic infection [Recovered/Resolved]
  - Chapped lips [Recovered/Resolved]
  - Diarrhoea [Recovered/Resolved]
  - Anorectal discomfort [Recovered/Resolved]
  - Anal pruritus [Recovered/Resolved]
